FAERS Safety Report 10495893 (Version 3)
Quarter: 2014Q4

REPORT INFORMATION
  Report Type: Spontaneous
  Country: JP (occurrence: JP)
  Receive Date: 20141003
  Receipt Date: 20141023
  Transmission Date: 20150528
  Serious: Yes (Other)
  Sender: FDA-Public Use
  Company Number: JP-PFIZER INC-2014249187

PATIENT
  Age: 38 Year
  Sex: Female

DRUGS (8)
  1. SOLANAX [Suspect]
     Active Substance: ALPRAZOLAM
     Indication: DEPRESSION
     Dosage: 0.4 MG, 3X/DAY
     Route: 048
     Dates: start: 20121128
  2. SOLANAX [Suspect]
     Active Substance: ALPRAZOLAM
     Indication: ADJUSTMENT DISORDER
  3. ETIZOLAM [Concomitant]
     Active Substance: ETIZOLAM
     Indication: DEPRESSION
     Dosage: 1 MG, 1X/DAY
     Route: 048
     Dates: start: 20121128
  4. BROTIZOLAM [Concomitant]
     Active Substance: BROTIZOLAM
     Indication: DEPRESSION
     Dosage: 0.25 MG, ONCE A DAY AS NEEDED
     Route: 048
     Dates: start: 20131002
  5. ETIZOLAM [Concomitant]
     Active Substance: ETIZOLAM
     Indication: ADJUSTMENT DISORDER
  6. REFLEX [Concomitant]
     Active Substance: MIRTAZAPINE
     Indication: DEPRESSION
     Dosage: 30 MG, 1X/DAY
     Route: 048
     Dates: start: 20130227
  7. REFLEX [Concomitant]
     Active Substance: MIRTAZAPINE
     Indication: ADJUSTMENT DISORDER
  8. BROTIZOLAM [Concomitant]
     Active Substance: BROTIZOLAM
     Indication: ADJUSTMENT DISORDER

REACTIONS (1)
  - Abortion spontaneous [Recovered/Resolved]

NARRATIVE: CASE EVENT DATE: 20140913
